FAERS Safety Report 5409245-5 (Version None)
Quarter: 2007Q3

REPORT INFORMATION
  Report Type: 
  Country: None (occurrence: None)
  Receive Date: 20070808
  Receipt Date: 20070808
  Transmission Date: 20080115
  Serious: No
  Sender: FDA-Public Use
  Company Number: None

PATIENT
  Sex: Female
  Weight: 56.6996 kg

DRUGS (3)
  1. OXYCONTIN [Suspect]
     Indication: BACK PAIN
     Dosage: ONE TIME BID PO
     Route: 048
     Dates: start: 20050101
  2. OXYCONTIN [Suspect]
     Indication: FIBROMYALGIA
     Dosage: ONE TIME BID PO
     Route: 048
     Dates: start: 20050101
  3. OXYCONTIN [Suspect]
     Indication: INTERVERTEBRAL DISC PROTRUSION
     Dosage: ONE TIME BID PO
     Route: 048
     Dates: start: 20050101

REACTIONS (3)
  - ACTIVITIES OF DAILY LIVING IMPAIRED [None]
  - FATIGUE [None]
  - RASH [None]
